FAERS Safety Report 6384523-4 (Version None)
Quarter: 2009Q3

REPORT INFORMATION
  Report Type: 
  Country: None (occurrence: None)
  Receive Date: 20090924
  Receipt Date: 20090611
  Transmission Date: 20100115
  Serious: Yes (Other)
  Sender: FDA-Public Use
  Company Number: 82312

PATIENT
  Age: 39 Year
  Sex: Male
  Weight: 81 kg

DRUGS (1)
  1. CYTARABINE [Suspect]
     Indication: ACUTE MYELOID LEUKAEMIA
     Dosage: 3G/M2

REACTIONS (1)
  - HEPATIC FAILURE [None]
